FAERS Safety Report 4542966-5 (Version None)
Quarter: 2004Q4

REPORT INFORMATION
  Report Type: 
  Country: None (occurrence: None)
  Receive Date: 20041229
  Receipt Date: 20041220
  Transmission Date: 20050328
  Serious: Yes (Other)
  Sender: FDA-Public Use
  Company Number: 25890

PATIENT
  Age: 64 Year
  Sex: Female

DRUGS (1)
  1. IMIQUIMOD (IMIQUIMOD) [Suspect]
     Indication: BASAL CELL CARCINOMA
     Route: 061
     Dates: start: 20040618, end: 20040919

REACTIONS (2)
  - CONDITION AGGRAVATED [None]
  - PSORIASIS [None]
